FAERS Safety Report 4311156-3 (Version None)
Quarter: 2004Q1

REPORT INFORMATION
  Report Type: 
  Country: None (occurrence: None)
  Receive Date: 20040302
  Receipt Date: 20040220
  Transmission Date: 20041129
  Serious: No
  Sender: FDA-Public Use
  Company Number: 2004UW03127

PATIENT
  Age: 61 Year
  Sex: Male

DRUGS (2)
  1. NEXIUM [Suspect]
     Indication: OESOPHAGITIS ULCERATIVE
     Dosage: 40 MG QD PO
     Route: 048
     Dates: start: 20031101, end: 20031201
  2. PREVACID [Concomitant]

REACTIONS (6)
  - ASTHENIA [None]
  - ATAXIA [None]
  - ENCEPHALITIS [None]
  - GAIT DISTURBANCE [None]
  - IMPAIRED WORK ABILITY [None]
  - PAIN [None]
